FAERS Safety Report 18387678 (Version 3)
Quarter: 2020Q4

REPORT INFORMATION
  Report Type: Spontaneous
  Country: CN (occurrence: CN)
  Receive Date: 20201015
  Receipt Date: 20201109
  Transmission Date: 20210114
  Serious: Yes (Hospitalization, Other)
  Sender: FDA-Public Use
  Company Number: CN-ROCHE-2695132

PATIENT
  Age: 70 Year
  Sex: Male
  Weight: 80 kg

DRUGS (1)
  1. ACTILYSE [Suspect]
     Active Substance: ALTEPLASE
     Indication: CEREBRAL INFARCTION
     Dosage: DOSE: PHYSICIAN DISPENSES MEDICATION BASED ON PATIENT WEIGHT OF 80 KG
     Route: 042

REACTIONS (5)
  - Gingival bleeding [Not Recovered/Not Resolved]
  - Coma [Not Recovered/Not Resolved]
  - Central nervous system necrosis [Not Recovered/Not Resolved]
  - Cerebral haemorrhage [Not Recovered/Not Resolved]
  - Product administration error [Unknown]
